FAERS Safety Report 6015012-4 (Version None)
Quarter: 2008Q4

REPORT INFORMATION
  Report Type: 
  Country: None (occurrence: None)
  Receive Date: 20081220
  Receipt Date: 20081217
  Transmission Date: 20090506
  Serious: Yes (Other)
  Sender: FDA-Public Use
  Company Number: US-ALLERGAN-0814194US

PATIENT
  Sex: Female

DRUGS (2)
  1. BOTOX [Suspect]
     Indication: HEADACHE
     Dosage: 400 UNITS, SINGLE
     Route: 030
     Dates: start: 20080814, end: 20080814
  2. BOTOX [Suspect]
     Indication: NECK PAIN

REACTIONS (3)
  - EYELID DISORDER [None]
  - FACIAL PARESIS [None]
  - MUSCULAR WEAKNESS [None]
